FAERS Safety Report 10582641 (Version 3)
Quarter: 2015Q1

REPORT INFORMATION
  Report Type: Spontaneous
  Country: US (occurrence: US)
  Receive Date: 20141113
  Receipt Date: 20150107
  Transmission Date: 20150720
  Serious: Yes (Hospitalization, Other)
  Sender: FDA-Public Use
  Company Number: US-GILEAD-2014-0122472

PATIENT
  Age: 50 Year
  Sex: Female

DRUGS (3)
  1. REVATIO [Concomitant]
     Active Substance: SILDENAFIL CITRATE
  2. LETAIRIS [Suspect]
     Active Substance: AMBRISENTAN
     Indication: PULMONARY ARTERIAL HYPERTENSION
     Dosage: 10 MG, QD
     Route: 065
     Dates: start: 20130228
  3. REMODULIN [Concomitant]
     Active Substance: TREPROSTINIL

REACTIONS (2)
  - Infusion site pain [Unknown]
  - Pulmonary arterial hypertension [Unknown]
